FAERS Safety Report 9856447 (Version 1)
Quarter: 2014Q1

REPORT INFORMATION
  Report Type: Spontaneous
  Country: IT (occurrence: IT)
  Receive Date: 20140130
  Receipt Date: 20140130
  Transmission Date: 20141002
  Serious: Yes (Other)
  Sender: FDA-Public Use
  Company Number: PHHY2014IT007985

PATIENT
  Age: 70 Year
  Sex: Female

DRUGS (3)
  1. LORAZEPAM [Suspect]
     Dosage: 50 MG, ONCE/SINGLE
     Dates: start: 20140115, end: 20140115
  2. ELOPRAM [Concomitant]
  3. CARDIOASPIRIN [Concomitant]

REACTIONS (4)
  - Fall [Recovering/Resolving]
  - Injury [Recovering/Resolving]
  - Speech disorder [Recovering/Resolving]
  - Drug abuse [Recovering/Resolving]
